FAERS Safety Report 11569314 (Version 1)
Quarter: 2015Q3

REPORT INFORMATION
  Report Type: Spontaneous
  Country: None (occurrence: None)
  Receive Date: 20150928
  Receipt Date: 20150928
  Transmission Date: 20151125
  Serious: Yes (Other)
  Sender: FDA-Public Use
  Company Number: None

PATIENT

DRUGS (1)
  1. VENLAFAXINE ER 75 MG [Suspect]
     Active Substance: VENLAFAXINE HYDROCHLORIDE
     Dosage: 1 PILL A DAY

REACTIONS (15)
  - Paraesthesia [None]
  - Nausea [None]
  - Dyspnoea [None]
  - Mydriasis [None]
  - Anxiety [None]
  - Nightmare [None]
  - Diarrhoea [None]
  - Tremor [None]
  - Confusional state [None]
  - Insomnia [None]
  - Headache [None]
  - Feeling abnormal [None]
  - Dizziness [None]
  - Abdominal pain upper [None]
  - Fatigue [None]

NARRATIVE: CASE EVENT DATE: 20150923
